FAERS Safety Report 5442876-5 (Version None)
Quarter: 2007Q3

REPORT INFORMATION
  Report Type: 
  Country: None (occurrence: None)
  Receive Date: 20070831
  Receipt Date: 20070831
  Transmission Date: 20080115
  Serious: Yes (Life-Threatening)
  Sender: FDA-Public Use
  Company Number: None

PATIENT
  Age: 57 Year
  Sex: Male
  Weight: 77 kg

DRUGS (1)
  1. THYMOGLOBULIN [Suspect]
     Indication: STEM CELL TRANSPLANT
     Dosage: 225 MG DAILY IV
     Route: 042
     Dates: start: 20070722, end: 20070722

REACTIONS (4)
  - CHILLS [None]
  - HYPOTENSION [None]
  - INFUSION RELATED REACTION [None]
  - PYREXIA [None]
